FAERS Safety Report 5276908-4 (Version None)
Quarter: 2007Q1

REPORT INFORMATION
  Report Type: 
  Country: None (occurrence: None)
  Receive Date: 20070327
  Receipt Date: 20070312
  Transmission Date: 20070707
  Serious: Yes (Death)
  Sender: FDA-Public Use
  Company Number: SEWYE020214MAR07

PATIENT
  Sex: Female

DRUGS (2)
  1. ENBREL [Suspect]
     Indication: RHEUMATOID ARTHRITIS
     Dosage: STANDARD DOSIS
     Route: 058
     Dates: start: 20040317, end: 20050502
  2. METHOTREXATE [Concomitant]
     Dosage: MG/UGE
     Route: 048
     Dates: start: 20040317, end: 20050502

REACTIONS (3)
  - BRAIN COMPRESSION [None]
  - BREAST CANCER [None]
  - METASTATIC MALIGNANT MELANOMA [None]
